FAERS Safety Report 7412433-X (Version None)
Quarter: 2011Q2

REPORT INFORMATION
  Report Type: 
  Country: None (occurrence: None)
  Receive Date: 20110413
  Receipt Date: 20110401
  Transmission Date: 20111010
  Serious: Yes (Hospitalization)
  Sender: FDA-Public Use
  Company Number: PHHY2011IT27281

PATIENT
  Sex: Female

DRUGS (1)
  1. CLOZAPINE [Suspect]

REACTIONS (3)
  - OBESITY [None]
  - HEPATIC STEATOSIS [None]
  - BODY FAT DISORDER [None]
